FAERS Safety Report 5796438-0 (Version None)
Quarter: 2008Q3

REPORT INFORMATION
  Report Type: 
  Country: None (occurrence: None)
  Receive Date: 20080701
  Receipt Date: 20080620
  Transmission Date: 20090109
  Serious: Yes (Life-Threatening)
  Sender: FDA-Public Use
  Company Number: BR-BRISTOL-MYERS SQUIBB COMPANY-14245336

PATIENT
  Age: 37 Year
  Sex: Male

DRUGS (5)
  1. EFAVIRENZ [Suspect]
     Indication: HIV INFECTION
     Dosage: INTERRUPTED ON 17JUN08.
     Route: 048
     Dates: start: 20080612
  2. TRUVADA [Suspect]
     Indication: HIV INFECTION
     Dosage: 1 DOSAGE FORM = 200-300MG.INTERRUPTED ON 17JUN08.
     Route: 048
     Dates: start: 20080612
  3. ISONIAZID [Concomitant]
     Indication: TUBERCULOSIS
     Dosage: TEMPORARILY HELD ON 15-JUN-2008.
     Dates: start: 20080611
  4. PYRAZINAMIDE [Concomitant]
     Indication: TUBERCULOSIS
     Dosage: TEMPORARILY HELD ON 15-JUN-2008.
     Dates: start: 20080611
  5. RIFAMPIN [Concomitant]
     Indication: TUBERCULOSIS
     Dosage: TEMPORARILY HELD ON 15-JUN-2008.
     Dates: start: 20080611

REACTIONS (1)
  - HEPATOTOXICITY [None]
